FAERS Safety Report 8784998 (Version 2)
Quarter: 2013Q1

REPORT INFORMATION
  Report Type: Spontaneous
  Country: BR (occurrence: None)
  Receive Date: 20120831
  Receipt Date: 20130318
  Transmission Date: 20140127
  Serious: Yes (Disabling, Other)
  Sender: FDA-Public Use
  Company Number: ENTC2012-0390

PATIENT
  Age: 78 Year
  Sex: Male

DRUGS (9)
  1. STALEVO (LEVODOPA, CARBIDOPA, ENTACAPONE) [Suspect]
     Indication: PARKINSON^S DISEASE
     Dosage: 1 TABLET IN FASTING
     Dates: start: 201107
  2. PROLOPA [Concomitant]
  3. GLICLAZIDE [Concomitant]
  4. METFORMIN [Concomitant]
  5. CRESTOR [Concomitant]
  6. QUETIAPINE [Concomitant]
  7. LEVOTIROXINA [Concomitant]
  8. RIVOTRIL [Concomitant]
  9. VENLAX [Concomitant]

REACTIONS (7)
  - Dysphagia [None]
  - Wrong technique in drug usage process [None]
  - Abasia [None]
  - Wheelchair user [None]
  - Hallucination, visual [None]
  - Somnolence [None]
  - Tooth discolouration [None]
